FAERS Safety Report 8920153 (Version 2)
Quarter: 2012Q4

REPORT INFORMATION
  Report Type: 
  Country: US (occurrence: US)
  Receive Date: 20121121
  Receipt Date: 20121211
  Transmission Date: 20130627
  Serious: Yes (Death)
  Sender: FDA-Public Use
  Company Number: US-B.I. PHARMACEUTICALS,INC./RIDGEFIELD-2012-BI-00766BP

PATIENT
  Age: 84 Year
  Sex: Male

DRUGS (2)
  1. ATROVENT [Suspect]
     Dosage: 17 mcg
     Route: 055
  2. COMBIVENT [Concomitant]

REACTIONS (1)
  - Death [Fatal]
